FAERS Safety Report 6957808-8 (Version None)
Quarter: 2010Q3

REPORT INFORMATION
  Report Type: 
  Country: None (occurrence: None)
  Receive Date: 20100830
  Receipt Date: 20100830
  Transmission Date: 20110219
  Serious: No
  Sender: FDA-Public Use
  Company Number: None

PATIENT
  Sex: Male
  Weight: 90.7194 kg

DRUGS (4)
  1. ADVIL LIQUI-GELS [Suspect]
  2. ALEVE (CAPLET) [Suspect]
  3. NUPRIN [Suspect]
  4. ASPIRIN [Suspect]

REACTIONS (1)
  - PRODUCT LABEL ISSUE [None]
